FAERS Safety Report 7057233-8 (Version None)
Quarter: 2010Q4

REPORT INFORMATION
  Report Type: 
  Country: None (occurrence: None)
  Receive Date: 20101022
  Receipt Date: 20101015
  Transmission Date: 20110411
  Serious: Yes (Hospitalization, Other)
  Sender: FDA-Public Use
  Company Number: JP-PFIZER INC-2010123350

PATIENT
  Age: 11 Year
  Sex: Female

DRUGS (7)
  1. SOLU-MEDROL [Suspect]
     Indication: HYPERTHYROIDISM
     Dosage: 1 G, 1X/DAY
     Route: 041
     Dates: start: 20091110, end: 20091112
  2. SOLU-MEDROL [Suspect]
     Dosage: 1 G, 1X/DAY
     Route: 041
     Dates: start: 20091117, end: 20091119
  3. SOLU-MEDROL [Suspect]
     Dosage: 1 G, 1X/DAY
     Route: 041
     Dates: start: 20091124, end: 20091126
  4. THIAMAZOLE [Concomitant]
     Dosage: 5 MG, 1X/DAY
     Route: 048
     Dates: start: 20091109
  5. PREDNISOLONE [Concomitant]
     Dosage: 30 MG, ALTERNATE DAY
     Route: 048
     Dates: start: 20091127, end: 20091210
  6. PREDNISOLONE [Concomitant]
     Dosage: 15 MG, ALTERNATE DAY
     Route: 048
     Dates: start: 20091211, end: 20091225
  7. PREDNISOLONE [Concomitant]
     Dosage: 5 MG, ALTERNATE DAY
     Route: 048
     Dates: start: 20091226, end: 20100110

REACTIONS (4)
  - BONE DENSITY DECREASED [None]
  - COAGULOPATHY [None]
  - CUSHINGOID [None]
  - FLUSHING [None]
